FAERS Safety Report 8162853-3 (Version None)
Quarter: 2012Q1

REPORT INFORMATION
  Report Type: 
  Country: None (occurrence: None)
  Receive Date: 20120224
  Receipt Date: 20120217
  Transmission Date: 20120608
  Serious: Yes (Hospitalization)
  Sender: FDA-Public Use
  Company Number: US-JNJFOC-20120209415

PATIENT
  Sex: Male

DRUGS (5)
  1. DURAGESIC-100 [Suspect]
     Indication: SPINAL FRACTURE
     Route: 062
     Dates: start: 20100201
  2. DURAGESIC-100 [Suspect]
     Route: 062
  3. COUMADIN [Concomitant]
     Indication: COAGULOPATHY
     Dosage: SATURDAY, SUNDAY, MONDAY, WEDNESDAY, FRIDAY
     Route: 048
  4. FENTANYL CITRATE [Suspect]
     Indication: PRODUCT USED FOR UNKNOWN INDICATION
     Route: 062
     Dates: start: 20100101
  5. COUMADIN [Concomitant]
     Dosage: TUEDAY AND THURSDAY
     Route: 048

REACTIONS (3)
  - DRUG INEFFECTIVE [None]
  - PRODUCT QUALITY ISSUE [None]
  - MYOCARDIAL INFARCTION [None]
